FAERS Safety Report 4871686-2 (Version None)
Quarter: 2006Q1

REPORT INFORMATION
  Report Type: 
  Country: None (occurrence: None)
  Receive Date: 20060104
  Receipt Date: 20051220
  Transmission Date: 20060701
  Serious: Yes (Other)
  Sender: FDA-Public Use
  Company Number: NLWYE254821DEC05

PATIENT
  Sex: Female

DRUGS (2)
  1. ENBREL [Suspect]
     Indication: PSORIATIC ARTHROPATHY
     Dates: start: 20040908, end: 20051013
  2. ARCOXIA [Concomitant]
     Dates: start: 20041013

REACTIONS (2)
  - VERTIGO [None]
  - VOMITING [None]
